FAERS Safety Report 5719543-3 (Version None)
Quarter: 2008Q2

REPORT INFORMATION
  Report Type: 
  Country: None (occurrence: None)
  Receive Date: 20080423
  Receipt Date: 20080225
  Transmission Date: 20081010
  Serious: Yes (Hospitalization)
  Sender: FDA-Public Use
  Company Number: 256708

PATIENT
  Age: 60 Year
  Sex: Female
  Weight: 68.9 kg

DRUGS (2)
  1. AVASTIN [Suspect]
     Indication: MALIGNANT MELANOMA
     Dosage: 100 MG/KG, QOW, IV DRIP
     Route: 041
     Dates: start: 20071203
  2. ABRAXANE [Suspect]
     Indication: MALIGNANT MELANOMA
     Dosage: 150 MG/M2, QOW, IV DRIP
     Route: 041
     Dates: start: 20071203

REACTIONS (2)
  - DYSPNOEA [None]
  - LEUKOPENIA [None]
